FAERS Safety Report 9393839 (Version 3)
Quarter: 2014Q1

REPORT INFORMATION
  Report Type: Spontaneous
  Country: US (occurrence: US)
  Receive Date: 20130710
  Receipt Date: 20140128
  Transmission Date: 20141002
  Serious: No
  Sender: FDA-Public Use
  Company Number: US-PFIZER INC-2013200692

PATIENT
  Age: 65 Year
  Sex: Male

DRUGS (6)
  1. ENBREL [Suspect]
     Indication: RHEUMATOID ARTHRITIS
     Dosage: UNK
  2. METHOTREXATE SODIUM [Suspect]
     Indication: RHEUMATOID ARTHRITIS
     Dosage: UNK
  3. ORENCIA [Suspect]
     Indication: RHEUMATOID ARTHRITIS
     Dosage: UNK
  4. PLAQUENIL [Concomitant]
     Dosage: UNK
  5. PREDNISONE [Concomitant]
     Indication: RHEUMATOID ARTHRITIS
     Dosage: 30 MG, QD
     Dates: start: 201212
  6. FORTEO [Concomitant]
     Dosage: UNK
     Dates: start: 20130108

REACTIONS (2)
  - Treatment failure [Unknown]
  - Drug ineffective [Unknown]
